FAERS Safety Report 8166841-2 (Version None)
Quarter: 2012Q1

REPORT INFORMATION
  Report Type: 
  Country: None (occurrence: None)
  Receive Date: 20120227
  Receipt Date: 20120221
  Transmission Date: 20120608
  Serious: Yes (Other)
  Sender: FDA-Public Use
  Company Number: US-ROXANE LABORATORIES, INC.-2012-RO-00687RO

PATIENT
  Age: 44 Year
  Sex: Female

DRUGS (4)
  1. FENTANYL [Suspect]
     Indication: SEDATION
     Dosage: 125 MG
  2. BUPROPION HCL [Suspect]
  3. PROPRANOLOL [Suspect]
  4. MIDAZOLAM [Suspect]
     Indication: SEDATION
     Dosage: 4 MG

REACTIONS (2)
  - SOMNOLENCE [None]
  - SOMATOFORM DISORDER [None]
